FAERS Safety Report 19514168 (Version 1)
Quarter: 2021Q3

REPORT INFORMATION
  Report Type: Spontaneous
  Country: FR (occurrence: FR)
  Receive Date: 20210709
  Receipt Date: 20210709
  Transmission Date: 20211014
  Serious: Yes (Hospitalization, Other)
  Sender: FDA-Public Use
  Company Number: FR-PURDUE-USA-2021-0274140

PATIENT
  Age: 95 Year
  Sex: Female

DRUGS (9)
  1. PARACETAMOL [Suspect]
     Active Substance: ACETAMINOPHEN
     Indication: PAIN
     Dosage: 3 G, DAILY
     Route: 048
  2. PREGABALINE [Concomitant]
     Active Substance: PREGABALIN
     Dosage: 200 MG, DAILY
     Route: 048
  3. LEVOTHYROX [Concomitant]
     Active Substance: LEVOTHYROXINE
     Dosage: 1 DF, DAILY
     Route: 048
  4. OXYCODONE HYDROCHLORIDE. [Suspect]
     Active Substance: OXYCODONE HYDROCHLORIDE
     Indication: PAIN
     Dosage: 20 MG, DAILY
     Route: 048
  5. AMIODARONE [Suspect]
     Active Substance: AMIODARONE
     Indication: ATRIAL FIBRILLATION
     Dosage: 200 MG, DAILY
     Route: 048
     Dates: end: 20210602
  6. ELIQUIS [Concomitant]
     Active Substance: APIXABAN
     Dosage: 5 MG, DAILY
     Route: 048
  7. DULOXETINE. [Concomitant]
     Active Substance: DULOXETINE
     Dosage: 60 MG, DAILY
     Route: 048
  8. OXYNORMORO [Suspect]
     Active Substance: OXYCODONE HYDROCHLORIDE
     Indication: PAIN
     Dosage: 40 MG, DAILY
     Route: 048
     Dates: end: 20210530
  9. OMEPRAZOLE. [Suspect]
     Active Substance: OMEPRAZOLE
     Indication: PRODUCT USED FOR UNKNOWN INDICATION
     Dosage: 40 MG, DAILY
     Route: 048
     Dates: end: 20210601

REACTIONS (1)
  - Mixed liver injury [Recovered/Resolved]

NARRATIVE: CASE EVENT DATE: 20210601
